FAERS Safety Report 10166716 (Version 1)
Quarter: 2014Q2

REPORT INFORMATION
  Report Type: Spontaneous
  Country: CH (occurrence: CH)
  Receive Date: 20140512
  Receipt Date: 20140512
  Transmission Date: 20141212
  Serious: Yes (Hospitalization)
  Sender: FDA-Public Use
  Company Number: CH-009507513-1404CHE015296

PATIENT
  Age: 65 Year
  Sex: Male
  Weight: 77.4 kg

DRUGS (16)
  1. REMERON [Suspect]
     Dosage: 30 MG, QD
     Route: 048
     Dates: end: 20140317
  2. REMERON [Suspect]
     Dosage: 15 MG, QD
     Route: 048
     Dates: start: 20140318
  3. HALDOL [Suspect]
     Dosage: 1 MG, BID
     Route: 048
     Dates: end: 20140317
  4. SERESTA [Suspect]
     Dosage: HALF A 15 MG TABLET DAILY
     Route: 048
     Dates: end: 20140317
  5. TEMOZOLOMIDE [Concomitant]
     Dosage: 2ND CYCLE
     Dates: start: 20140304, end: 20140308
  6. ASPIRIN CARDIO [Concomitant]
     Dosage: 100 MG, QD
     Route: 048
  7. BELOC (METOPROLOL TARTRATE) [Concomitant]
     Dosage: 25 MG, BID
     Route: 048
  8. AMLODIPINE [Concomitant]
     Dosage: 5 MG, QD
     Route: 048
  9. PANTOZOL [Concomitant]
     Dosage: 40 MG, QD
     Route: 048
  10. METFORMIN [Concomitant]
     Dosage: 1000 MG, TID
     Route: 048
  11. AMARYL [Concomitant]
     Dosage: 4 MG, QD
     Route: 048
  12. DEPAKINE CHRONO [Concomitant]
     Dosage: 500 MG, BID
     Route: 048
  13. DEPAKINE CHRONO [Concomitant]
     Dosage: 300 MG, BID
     Route: 048
  14. RISPERDAL [Concomitant]
     Dosage: 1 MG, QD
     Route: 048
  15. FORTECORTIN [Concomitant]
     Dosage: HALF A 4MG TABLET DAILY
     Route: 048
  16. BACTRIM [Concomitant]
     Indication: PROPHYLAXIS
     Dosage: 800/160MG,3 TABLETS PER WEEK
     Route: 048

REACTIONS (2)
  - Altered state of consciousness [Recovered/Resolved]
  - Somnolence [Recovered/Resolved]
